FAERS Safety Report 8609676-6 (Version None)
Quarter: 2012Q3

REPORT INFORMATION
  Report Type: 
  Country: None (occurrence: None)
  Receive Date: 20120821
  Receipt Date: 20120606
  Transmission Date: 20120928
  Serious: Yes (Other)
  Sender: FDA-Public Use
  Company Number: US-TEVA-2011004320

PATIENT
  Sex: Female
  Weight: 64.014 kg

DRUGS (2)
  1. MULTI-VITAMINS [Concomitant]
     Dates: start: 20110511
  2. PROVIGIL [Suspect]
     Indication: NARCOLEPSY
     Dosage: 200 MILLIGRAM DAILY;
     Route: 048
     Dates: start: 19980101

REACTIONS (3)
  - LIVE BIRTH [None]
  - RETAINED PLACENTA OR MEMBRANES [None]
  - SUPRAVENTRICULAR EXTRASYSTOLES [None]
